FAERS Safety Report 19165241 (Version 6)
Quarter: 2023Q1

REPORT INFORMATION
  Report Type: Report from Study
  Country: GB (occurrence: GB)
  Receive Date: 20210421
  Receipt Date: 20230328
  Transmission Date: 20230417
  Serious: Yes (Hospitalization)
  Sender: FDA-Public Use
  Company Number: NVSC2021GB085210

PATIENT
  Age: 79 Year
  Sex: Female

DRUGS (1)
  1. ERELZI [Suspect]
     Active Substance: ETANERCEPT-SZZS
     Indication: Rheumatoid arthritis
     Dosage: 50 MG, QW (AS DIRECTED)
     Route: 058

REACTIONS (6)
  - Lower limb fracture [Unknown]
  - Fall [Unknown]
  - Device failure [Unknown]
  - Post procedural infection [Unknown]
  - Infection [Unknown]
  - Product dose omission issue [Unknown]
